FAERS Safety Report 16871853 (Version 2)
Quarter: 2019Q4

REPORT INFORMATION
  Report Type: Report from Study
  Country: GB (occurrence: GB)
  Receive Date: 20191001
  Receipt Date: 20191004
  Transmission Date: 20200122
  Serious: Yes (Death, Other)
  Sender: FDA-Public Use
  Company Number: GB-AUROBINDO-AUR-APL-2019-063075

PATIENT
  Age: 51 Year
  Sex: Male

DRUGS (6)
  1. VALGANCICLOVIR. [Suspect]
     Active Substance: VALGANCICLOVIR
     Indication: CYTOMEGALOVIRUS INFECTION
     Dosage: 900 MILLIGRAM, ONCE A DAY
     Route: 065
  2. MYCOPHENOLATE MOFETIL. [Suspect]
     Active Substance: MYCOPHENOLATE MOFETIL
     Indication: IMMUNOSUPPRESSION
     Dosage: 2000 MILLIGRAM, ONCE A DAY
     Route: 048
  3. CYTOTECT CP [Suspect]
     Active Substance: HUMAN CYTOMEGALOVIRUS IMMUNE GLOBULIN
     Indication: CYTOMEGALOVIRUS INFECTION
     Dosage: 2 DOSE, EVERY WEEK
     Route: 065
  4. CICLOSPORIN [Suspect]
     Active Substance: CYCLOSPORINE
     Indication: IMMUNOSUPPRESSION
     Dosage: 16 MILLIGRAM/KILOGRAM, ONCE A DAY
     Route: 065
  5. GANCICLOVIR. [Suspect]
     Active Substance: GANCICLOVIR
     Indication: CYTOMEGALOVIRUS INFECTION
     Dosage: 10 MILLIGRAM/KILOGRAM, ONCE A DAY
     Route: 042
  6. CYTOTECT CP [Suspect]
     Active Substance: HUMAN CYTOMEGALOVIRUS IMMUNE GLOBULIN
     Dosage: 1, EVERY WEEK (2 - 3 ML/KG)
     Route: 065

REACTIONS (3)
  - Renal failure [Fatal]
  - Cytomegalovirus syndrome [Fatal]
  - Myocarditis toxoplasmal [Fatal]
